FAERS Safety Report 18958697 (Version 1)
Quarter: 2021Q1

REPORT INFORMATION
  Report Type: Spontaneous
  Country: JP (occurrence: JP)
  Receive Date: 20210302
  Receipt Date: 20210302
  Transmission Date: 20210420
  Serious: Yes (Other)
  Sender: FDA-Public Use
  Company Number: JP-GLAXOSMITHKLINE-JP2021JPN049297

PATIENT
  Age: 8 Decade
  Sex: Male

DRUGS (3)
  1. ANORO ELLIPTA [Suspect]
     Active Substance: UMECLIDINIUM BROMIDE\VILANTEROL TRIFENATATE
     Indication: ASTHMA-CHRONIC OBSTRUCTIVE PULMONARY DISEASE OVERLAP SYNDROME
     Dosage: UNK
     Route: 055
  2. TRELEGY ELLIPTA [Suspect]
     Active Substance: FLUTICASONE FUROATE\UMECLIDINIUM BROMIDE\VILANTEROL TRIFENATATE
     Indication: ASTHMA
     Dosage: UNK UG
     Route: 055
  3. OMALIZUMAB (GENETICAL RECOMBINATION) [Concomitant]
     Active Substance: OMALIZUMAB
     Dosage: UNK

REACTIONS (4)
  - Pneumonia [Recovering/Resolving]
  - Hypoxia [Unknown]
  - Lower respiratory tract infection [Recovering/Resolving]
  - Asthma [Unknown]
